FAERS Safety Report 9710582 (Version 1)
Quarter: 2013Q4

REPORT INFORMATION
  Report Type: Spontaneous
  Country: US (occurrence: US)
  Receive Date: 20131126
  Receipt Date: 20131126
  Transmission Date: 20140711
  Serious: No
  Sender: FDA-Public Use
  Company Number: US-BRISTOL-MYERS SQUIBB COMPANY-18915934

PATIENT
  Age: 55 Year
  Sex: Female
  Weight: 86.17 kg

DRUGS (3)
  1. BYETTA [Suspect]
     Indication: TYPE 2 DIABETES MELLITUS
     Dosage: DOSE INCRESED TO 10MCG ON MAY13
     Route: 058
     Dates: start: 201304
  2. JANUVIA [Suspect]
     Dosage: DOSE INCREASED TO 100MG
     Route: 048
  3. GLIPIZIDE [Suspect]
     Route: 048

REACTIONS (5)
  - Dizziness [Recovering/Resolving]
  - Chest pain [Recovering/Resolving]
  - Blood glucose increased [Recovering/Resolving]
  - Nausea [Recovering/Resolving]
  - Fatigue [Recovering/Resolving]
